FAERS Safety Report 8462891 (Version 2)
Quarter: 2013Q1

REPORT INFORMATION
  Report Type: Spontaneous
  Country: US (occurrence: US)
  Receive Date: 20120316
  Receipt Date: 20120508
  Transmission Date: 20140127
  Serious: Yes (Other)
  Sender: FDA-Public Use
  Company Number: None

PATIENT
  Age: 6 Year
  Sex: Male

DRUGS (2)
  1. KAPVAY [Suspect]
     Dosage: 0.1 MG, QD
     Dates: start: 20120301
  2. VYVANSE [Concomitant]
     Dosage: 40 MG, QD

REACTIONS (3)
  - SOMNAMBULISM [Unknown]
  - HALLUCINATION [Unknown]
  - NIGHTMARE [Unknown]
